FAERS Safety Report 17877237 (Version 3)
Quarter: 2023Q2

REPORT INFORMATION
  Report Type: Spontaneous
  Country: BR (occurrence: BR)
  Receive Date: 20200609
  Receipt Date: 20230602
  Transmission Date: 20230721
  Serious: Yes (Other)
  Sender: FDA-Public Use
  Company Number: BR-DSJP-DSU-2019-113610

PATIENT
  Sex: Male

DRUGS (10)
  1. HYDROCHLOROTHIAZIDE\OLMESARTAN MEDOXOMIL [Suspect]
     Active Substance: HYDROCHLOROTHIAZIDE\OLMESARTAN MEDOXOMIL
     Indication: Hypertension
     Dosage: 1 TABLET OF 40+25MG, DAILY (BEFORE BREAKFAST)
     Route: 065
     Dates: start: 2011, end: 2015
  2. HYDROCHLOROTHIAZIDE\OLMESARTAN MEDOXOMIL [Suspect]
     Active Substance: HYDROCHLOROTHIAZIDE\OLMESARTAN MEDOXOMIL
     Dosage: 1 TABLET OF 20+12.5MG, QD (AFTER BREAKFAST)
     Route: 065
     Dates: start: 2015, end: 2016
  3. HYDROCHLOROTHIAZIDE\OLMESARTAN MEDOXOMIL [Suspect]
     Active Substance: HYDROCHLOROTHIAZIDE\OLMESARTAN MEDOXOMIL
     Dosage: 1 TABLET OF 20+12.5MG, QD (AFTER LUNCH)
     Route: 065
     Dates: start: 2016
  4. HYDROCHLOROTHIAZIDE\OLMESARTAN MEDOXOMIL [Suspect]
     Active Substance: HYDROCHLOROTHIAZIDE\OLMESARTAN MEDOXOMIL
     Dosage: 1 TABLET OF 40+25MG, QD
     Route: 065
     Dates: start: 202003
  5. HYDROCHLOROTHIAZIDE\OLMESARTAN MEDOXOMIL [Suspect]
     Active Substance: HYDROCHLOROTHIAZIDE\OLMESARTAN MEDOXOMIL
     Dosage: 40+12.5MG, QD
     Route: 065
  6. VALIUM [Concomitant]
     Active Substance: DIAZEPAM
     Indication: Sedative therapy
     Dosage: 10 MG (IN MORNING)
     Route: 065
     Dates: start: 1978
  7. PROPRANOLOL [Concomitant]
     Active Substance: PROPRANOLOL HYDROCHLORIDE
     Indication: Arrhythmia
     Dosage: UNK
     Route: 065
     Dates: start: 1985
  8. PROPRANOLOL [Concomitant]
     Active Substance: PROPRANOLOL HYDROCHLORIDE
     Indication: Mitral valve prolapse
  9. PROPRANOLOL [Concomitant]
     Active Substance: PROPRANOLOL HYDROCHLORIDE
     Indication: Regurgitation
  10. SUSTRATE [Concomitant]
     Active Substance: PROPATYL NITRATE
     Indication: Vasodilatation
     Dosage: UNK
     Route: 065
     Dates: start: 1985

REACTIONS (17)
  - Facial paralysis [Not Recovered/Not Resolved]
  - Nervousness [Recovered/Resolved]
  - Stress [Recovered/Resolved]
  - Malaise [Recovered/Resolved]
  - Decreased immune responsiveness [Recovered/Resolved]
  - Herpes zoster [Recovered/Resolved]
  - Blister [Recovered/Resolved]
  - Dizziness [Recovered/Resolved]
  - Hypotension [Recovered/Resolved]
  - Extra dose administered [Recovered/Resolved]
  - Dyschromatopsia [Unknown]
  - Blood pressure inadequately controlled [Recovered/Resolved]
  - Drug ineffective [Unknown]
  - Intentional product misuse [Recovered/Resolved]
  - Product prescribing error [Unknown]
  - Dysphagia [Recovered/Resolved]
  - Muscular weakness [Recovered/Resolved]

NARRATIVE: CASE EVENT DATE: 20110101
